FAERS Safety Report 19160370 (Version 3)
Quarter: 2021Q3

REPORT INFORMATION
  Report Type: Report from Study
  Country: US (occurrence: US)
  Receive Date: 20210420
  Receipt Date: 20210802
  Transmission Date: 20211014
  Serious: No
  Sender: FDA-Public Use
  Company Number: NVSC2021US082345

PATIENT
  Sex: Female

DRUGS (1)
  1. KESIMPTA [Suspect]
     Active Substance: OFATUMUMAB
     Indication: RELAPSING MULTIPLE SCLEROSIS
     Dosage: QW
     Route: 058
     Dates: start: 20210401

REACTIONS (3)
  - Nervousness [Unknown]
  - Device issue [Unknown]
  - Wrong technique in device usage process [Unknown]
